FAERS Safety Report 14149574 (Version 2)
Quarter: 2017Q4

REPORT INFORMATION
  Report Type: Spontaneous
  Country: EG (occurrence: EG)
  Receive Date: 20171101
  Receipt Date: 20171121
  Transmission Date: 20180321
  Serious: Yes (Death)
  Sender: FDA-Public Use
  Company Number: EG-SA-2017SA211185

PATIENT
  Age: 21 Month
  Sex: Male
  Weight: 9 kg

DRUGS (1)
  1. CEREZYME [Suspect]
     Active Substance: IMIGLUCERASE
     Indication: GAUCHER^S DISEASE
     Dosage: DOSE: 60/KG
     Route: 041
     Dates: start: 20161006, end: 20170511

REACTIONS (2)
  - Circulatory collapse [Fatal]
  - Status epilepticus [Fatal]

NARRATIVE: CASE EVENT DATE: 20170515
